FAERS Safety Report 7522713 (Version 3)
Quarter: 2013Q2

REPORT INFORMATION
  Report Type: Spontaneous
  Country: CA (occurrence: None)
  Receive Date: 20100712
  Receipt Date: 20130614
  Transmission Date: 20140414
  Serious: Yes (Hospitalization, Disabling, Other)
  Sender: FDA-Public Use
  Company Number: 2010025319

PATIENT
  Age: 52 Year
  Sex: Female

DRUGS (5)
  1. PRIVIGEN [Suspect]
     Indication: BK VIRUS INFECTION
     Dosage: 70 G, 1 GM/KG;70 GM RECEIVED PRIOR TO PRIVIGEN STOP
     Route: 042
     Dates: start: 20100625, end: 20100625
  2. PRIVIGEN [Suspect]
     Indication: IMMUNOSUPPRESSION
     Dosage: 70 G, 1 GM/KG;70 GM RECEIVED PRIOR TO PRIVIGEN STOP
     Route: 042
     Dates: start: 20100625, end: 20100625
  3. PRIVIGEN [Suspect]
     Indication: TRANSPLANT REJECTION
     Dosage: 70 G, 1 GM/KG;70 GM RECEIVED PRIOR TO PRIVIGEN STOP
     Route: 042
     Dates: start: 20100625, end: 20100625
  4. SIROLIMUS (SIROLIMUS) [Concomitant]
  5. LEFLUNOMIDE [Concomitant]

REACTIONS (17)
  - TRANSPLANT REJECTION [None]
  - DRUG HYPERSENSITIVITY [None]
  - INFUSION RELATED REACTION [None]
  - Nausea [None]
  - Vomiting [None]
  - Tachycardia [None]
  - Pyrexia [None]
  - Transplant rejection [None]
  - Off label use [None]
  - Haemoglobin decreased [None]
  - Platelet count decreased [None]
  - Blood lactate dehydrogenase increased [None]
  - Thrombotic microangiopathy [None]
  - Renal vasculitis [None]
  - Glomerulonephritis [None]
  - Renal tubular disorder [None]
  - Haemodialysis [None]
